FAERS Safety Report 7585576-8 (Version None)
Quarter: 2011Q2

REPORT INFORMATION
  Report Type: 
  Country: None (occurrence: None)
  Receive Date: 20110628
  Receipt Date: 20110628
  Transmission Date: 20111010
  Serious: Yes (Death)
  Sender: FDA-Public Use
  Company Number: None

PATIENT
  Sex: Male
  Weight: 138.6 kg

DRUGS (2)
  1. VENLAFAXINE HCL [Suspect]
     Indication: DEPRESSION
     Dosage: 75MG 2 TIMES DAILY ORALLY
     Route: 048
     Dates: start: 20110203, end: 20110308
  2. NYQUIL VICKS [Suspect]
     Dosage: UNKNOWN ORALLY PROXIMATE TO TIME OF DEATH
     Route: 048

REACTIONS (13)
  - UPPER RESPIRATORY TRACT INFECTION [None]
  - CHEST PAIN [None]
  - SEPTIC SHOCK [None]
  - DIARRHOEA [None]
  - MALAISE [None]
  - CARDIO-RESPIRATORY ARREST [None]
  - VOMITING [None]
  - BLOOD CREATININE INCREASED [None]
  - ASPARTATE AMINOTRANSFERASE INCREASED [None]
  - MULTI-ORGAN FAILURE [None]
  - SEROTONIN SYNDROME [None]
  - LACTIC ACIDOSIS [None]
  - CIRCULATORY COLLAPSE [None]
